FAERS Safety Report 7530790-0 (Version None)
Quarter: 2011Q2

REPORT INFORMATION
  Report Type: 
  Country: None (occurrence: None)
  Receive Date: 20110607
  Receipt Date: 20110526
  Transmission Date: 20111010
  Serious: Yes (Other)
  Sender: FDA-Public Use
  Company Number: US-AMGEN-USASP2011027613

PATIENT
  Age: 44 Year
  Sex: Female

DRUGS (2)
  1. TREXALL [Concomitant]
     Dosage: 1 MG, QWK
     Dates: start: 20100101
  2. ENBREL [Suspect]
     Indication: PSORIATIC ARTHROPATHY
     Dosage: 50 MG, QWK
     Dates: start: 20100525, end: 20110517

REACTIONS (10)
  - DYSPNOEA [None]
  - PSORIATIC ARTHROPATHY [None]
  - CHRONIC SINUSITIS [None]
  - DYSPHAGIA [None]
  - PULMONARY MASS [None]
  - BRONCHITIS [None]
  - INJECTION SITE EXTRAVASATION [None]
  - H1N1 INFLUENZA [None]
  - DRUG EFFECT DECREASED [None]
  - AIRWAY COMPLICATION OF ANAESTHESIA [None]
